FAERS Safety Report 4693793-X (Version None)
Quarter: 2005Q2

REPORT INFORMATION
  Report Type: 
  Country: None (occurrence: None)
  Receive Date: 20050616
  Receipt Date: 20050610
  Transmission Date: 20051028
  Serious: Yes (Death)
  Sender: FDA-Public Use
  Company Number: 028-20785-05050094

PATIENT
  Age: 80 Year
  Sex: Male

DRUGS (2)
  1. THALOMID [Suspect]
     Indication: MULTIPLE MYELOMA
     Dosage: 50 MG, DAILY, ORAL
     Route: 048
     Dates: start: 20040903, end: 20040912
  2. DECADRON [Suspect]
     Indication: MULTIPLE MYELOMA
     Dosage: 40 MG X4 DAYS EVERY 2 WEEKS,

REACTIONS (1)
  - LUNG NEOPLASM MALIGNANT [None]
